FAERS Safety Report 20920580 (Version 2)
Quarter: 2022Q2

REPORT INFORMATION
  Report Type: Spontaneous
  Country: US (occurrence: US)
  Receive Date: 20220606
  Receipt Date: 20220614
  Transmission Date: 20220720
  Serious: Yes (Other)
  Sender: FDA-Public Use
  Company Number: US-SMITH AND NEPHEW, INC-2022SMT00078

PATIENT
  Sex: Male
  Weight: 136.05 kg

DRUGS (4)
  1. COLLAGENASE SANTYL [Suspect]
     Active Substance: COLLAGENASE CLOSTRIDIUM HISTOLYTICUM
     Indication: Wound
     Dosage: ^2 2 2 CENTIMETER TO WOUND, 1.0 CENTIMETER WOUND 1.3 CENTIMETER WOUND^ 1X/DAY
     Route: 061
     Dates: start: 2022, end: 2022
  2. COLLAGENASE SANTYL [Suspect]
     Active Substance: COLLAGENASE CLOSTRIDIUM HISTOLYTICUM
     Dosage: ^2 2 2 CENTIMETER TO WOUND, 1.0 CENTIMETER WOUND 1.3 CENTIMETER WOUND^ 1X/DAY
     Route: 061
     Dates: start: 2022
  3. UNSPECIFIED BLOOD PRESSURE PILL [Concomitant]
  4. VITAMINS [Concomitant]
     Active Substance: VITAMINS

REACTIONS (1)
  - Wound infection [Not Recovered/Not Resolved]

NARRATIVE: CASE EVENT DATE: 20220101
